FAERS Safety Report 20534108 (Version 1)
Quarter: 2022Q1

REPORT INFORMATION
  Report Type: Other
  Country: CN (occurrence: None)
  Receive Date: 20220301
  Receipt Date: 20220301
  Transmission Date: 20220423
  Serious: Yes (Other)
  Sender: FDA-Public Use
  Company Number: CN-ROCHE-3029379

PATIENT

DRUGS (10)
  1. CAPECITABINE [Suspect]
     Active Substance: CAPECITABINE
     Indication: Nasopharyngeal cancer metastatic
     Route: 065
  2. PACLITAXEL [Suspect]
     Active Substance: PACLITAXEL
     Indication: Nasopharyngeal cancer metastatic
     Route: 065
  3. DOCETAXEL [Suspect]
     Active Substance: DOCETAXEL
     Indication: Nasopharyngeal cancer metastatic
     Route: 065
  4. NEDAPLATIN [Suspect]
     Active Substance: NEDAPLATIN
     Indication: Nasopharyngeal cancer metastatic
     Route: 065
  5. CARBOPLATIN [Suspect]
     Active Substance: CARBOPLATIN
     Indication: Nasopharyngeal cancer metastatic
     Route: 065
  6. GEMCITABINE [Suspect]
     Active Substance: GEMCITABINE
     Indication: Nasopharyngeal cancer metastatic
     Route: 065
  7. CAMRELIZUMAB [Suspect]
     Active Substance: CAMRELIZUMAB
     Indication: Drug therapy
     Dosage: (200 MG) ON DAY 1 EVERY TWO OR THREE WEEKS
     Route: 065
  8. TORIPALIMAB [Suspect]
     Active Substance: TORIPALIMAB
     Indication: Drug therapy
     Dosage: (240 MG) ON DAY 1 EVERY THREE WEEKS
     Route: 065
  9. PENPULIMAB [Suspect]
     Active Substance: PENPULIMAB
     Indication: Drug therapy
     Dosage: (200 MG) ON DAY 1 EVERY TWO WEEKS
     Route: 065
  10. TISLELIZUMAB [Suspect]
     Active Substance: TISLELIZUMAB
     Indication: Drug therapy
     Dosage: (200 MG) ON DAY 1 EVERY THREE WEEKS
     Route: 065

REACTIONS (17)
  - Neutropenia [Unknown]
  - Anaemia [Unknown]
  - Thrombocytopenia [Unknown]
  - Hepatic function abnormal [Unknown]
  - Renal impairment [Unknown]
  - Decreased appetite [Unknown]
  - Rash [Unknown]
  - Pruritus [Unknown]
  - Herpes zoster [Unknown]
  - Myalgia [Unknown]
  - Neuropathy peripheral [Unknown]
  - Hypothyroidism [Unknown]
  - Fatigue [Unknown]
  - Hyperglycaemia [Unknown]
  - Pneumonitis [Unknown]
  - Diarrhoea [Unknown]
  - Proteinuria [Unknown]
